FAERS Safety Report 8381389-8 (Version None)
Quarter: 2012Q2

REPORT INFORMATION
  Report Type: 
  Country: None (occurrence: None)
  Receive Date: 20120523
  Receipt Date: 20120517
  Transmission Date: 20120825
  Serious: Yes (Death, Other)
  Sender: FDA-Public Use
  Company Number: PL-CELGENEUS-129-50794-12020822

PATIENT
  Sex: Male

DRUGS (1)
  1. VIDAZA [Suspect]
     Route: 050
     Dates: start: 20100101, end: 20110101

REACTIONS (3)
  - LEUKOCYTOSIS [None]
  - DEATH [None]
  - ACUTE MYELOID LEUKAEMIA [None]
